FAERS Safety Report 6007334-8 (Version None)
Quarter: 2008Q4

REPORT INFORMATION
  Report Type: 
  Country: None (occurrence: None)
  Receive Date: 20081217
  Receipt Date: 20080311
  Transmission Date: 20090506
  Serious: No
  Sender: FDA-Public Use
  Company Number: US-ASTRAZENECA-2008UW04959

PATIENT
  Age: 65 Year
  Sex: Male
  Weight: 68 kg

DRUGS (1)
  1. CRESTOR [Suspect]
     Indication: LOW DENSITY LIPOPROTEIN INCREASED
     Route: 048
     Dates: start: 20080101

REACTIONS (1)
  - BACK PAIN [None]
